FAERS Safety Report 6304643-X (Version None)
Quarter: 2009Q3

REPORT INFORMATION
  Report Type: 
  Country: None (occurrence: None)
  Receive Date: 20090811
  Receipt Date: 20090803
  Transmission Date: 20100115
  Serious: No
  Sender: FDA-Public Use
  Company Number: US-JNJFOC-20090704768

PATIENT
  Sex: Female

DRUGS (4)
  1. DURAGESIC-100 [Suspect]
     Indication: PAIN
     Route: 062
  2. OXYCODONE [Concomitant]
     Indication: PAIN
     Dosage: AS NECESSARY
     Route: 048
  3. BACLOFEN [Concomitant]
     Indication: MUSCLE SPASMS
     Route: 065
  4. AMITRIPTYLINE [Concomitant]
     Indication: PAIN
     Dosage: AS NECESSARY
     Route: 065

REACTIONS (5)
  - DEVICE LEAKAGE [None]
  - DRUG DOSE OMISSION [None]
  - DRUG INEFFECTIVE [None]
  - DYSARTHRIA [None]
  - SOMNOLENCE [None]
